FAERS Safety Report 24437063 (Version 2)
Quarter: 2024Q4

REPORT INFORMATION
  Report Type: Spontaneous
  Country: ES (occurrence: ES)
  Receive Date: 20241015
  Receipt Date: 20241120
  Transmission Date: 20250115
  Serious: Yes (Hospitalization)
  Sender: MYLAN
  Company Number: ES-MYLANLABS-2024M1091714

PATIENT
  Age: 64 Year
  Sex: Female

DRUGS (2)
  1. OLANZAPINE [Suspect]
     Active Substance: OLANZAPINE
     Indication: Schizophrenia
     Dosage: 20 MILLIGRAM, QD
     Dates: start: 2008
  2. OLANZAPINE [Suspect]
     Active Substance: OLANZAPINE
     Dosage: UNK, RECHALLENGE WAS DONE, REACTION RECURRED
     Route: 048

REACTIONS (3)
  - Haemolytic anaemia [Recovered/Resolved]
  - Neutropenia [Recovered/Resolved]
  - Drug ineffective [Unknown]

NARRATIVE: CASE EVENT DATE: 20090101
